FAERS Safety Report 7075024-9 (Version None)
Quarter: 2010Q4

REPORT INFORMATION
  Report Type: 
  Country: None (occurrence: None)
  Receive Date: 20101029
  Receipt Date: 20100119
  Transmission Date: 20110411
  Serious: No
  Sender: FDA-Public Use
  Company Number: US-WYE-H13081210

PATIENT
  Age: 70 Year
  Sex: Female
  Weight: 90.8 kg

DRUGS (1)
  1. ADVIL PM [Suspect]
     Indication: MYALGIA
     Route: 048
     Dates: start: 20100115, end: 20100115

REACTIONS (2)
  - DRUG EFFECT DECREASED [None]
  - NERVOUSNESS [None]
